FAERS Safety Report 4314075-1 (Version None)
Quarter: 2004Q1

REPORT INFORMATION
  Report Type: 
  Country: None (occurrence: None)
  Receive Date: 20040308
  Receipt Date: 20040308
  Transmission Date: 20041129
  Serious: Yes (Other)
  Sender: FDA-Public Use
  Company Number: None

PATIENT
  Age: 33 Year
  Sex: Male
  Weight: 136.0791 kg

DRUGS (5)
  1. PAXIL [Suspect]
     Indication: ANXIETY
     Dosage: 1 DAILY ORAL
     Route: 048
     Dates: start: 19990905, end: 20021107
  2. PAXIL [Suspect]
     Indication: PANIC ATTACK
     Dosage: 1 DAILY ORAL
     Route: 048
     Dates: start: 19990905, end: 20021107
  3. PAXIL CR [Suspect]
     Indication: AGORAPHOBIA
     Dosage: 1 DAILY ORAL
     Route: 048
     Dates: start: 20021107, end: 20040220
  4. PAXIL CR [Suspect]
     Indication: ANXIETY
     Dosage: 1 DAILY ORAL
     Route: 048
     Dates: start: 20021107, end: 20040220
  5. PAXIL CR [Suspect]
     Indication: PANIC ATTACK
     Dosage: 1 DAILY ORAL
     Route: 048
     Dates: start: 20021107, end: 20040220

REACTIONS (8)
  - AGGRESSION [None]
  - DRUG WITHDRAWAL SYNDROME [None]
  - IMPAIRED WORK ABILITY [None]
  - IRRITABILITY [None]
  - LIVER DISORDER [None]
  - MIGRAINE [None]
  - NIGHTMARE [None]
  - SUICIDAL IDEATION [None]
